FAERS Safety Report 17334285 (Version 1)
Quarter: 2020Q1

REPORT INFORMATION
  Report Type: Report from Study
  Country: None (occurrence: FR)
  Receive Date: 20200128
  Receipt Date: 20200128
  Transmission Date: 20200409
  Serious: Yes (Hospitalization)
  Sender: FDA-Public Use
  Company Number: FR-ABBVIE-19K-056-2846659-00

PATIENT
  Age: 62 Year
  Sex: Female

DRUGS (5)
  1. DUODOPA [Suspect]
     Active Substance: CARBIDOPA\LEVODOPA
     Dosage: MD 12ML; ED 5.3 ML (EVERY 2 HOURS); CFR (DURING A DAY) 5 ML/H; CFR (DURING NIGHT) 3 ML/H
     Route: 050
     Dates: start: 2019
  2. MODOPAR [Concomitant]
     Active Substance: BENSERAZIDE HYDROCHLORIDE\LEVODOPA
     Indication: PRODUCT USED FOR UNKNOWN INDICATION
  3. DUODOPA [Suspect]
     Active Substance: CARBIDOPA\LEVODOPA
     Dosage: MD 12ML; ED 5.3 ML (EVERY 2 HOURS) ;CONTINUOUS FLOW RATE (DURING A DAY) 5 ML/H
     Route: 050
     Dates: start: 2019
  4. DUODOPA [Suspect]
     Active Substance: CARBIDOPA\LEVODOPA
     Indication: PARKINSON^S DISEASE
     Dosage: MD 12ML; CFR (DURING A DAY) 5.3ML/H?NOT DONE BOLUS
     Route: 050
     Dates: start: 201906, end: 201908
  5. DUODOPA [Suspect]
     Active Substance: CARBIDOPA\LEVODOPA
     Dosage: MD 12ML; CFR (DURING A DAY) 4.8ML/H;?ED EVERY 2 HOURS
     Route: 050
     Dates: start: 201908, end: 2019

REACTIONS (7)
  - Cholecystitis [Not Recovered/Not Resolved]
  - Freezing phenomenon [Not Recovered/Not Resolved]
  - Dyskinesia [Not Recovered/Not Resolved]
  - Dyspepsia [Unknown]
  - Fall [Unknown]
  - Musculoskeletal chest pain [Unknown]
  - Middle insomnia [Not Recovered/Not Resolved]

NARRATIVE: CASE EVENT DATE: 2019
